FAERS Safety Report 8454276-4 (Version None)
Quarter: 2012Q2

REPORT INFORMATION
  Report Type: 
  Country: None (occurrence: None)
  Receive Date: 20120620
  Receipt Date: 20120613
  Transmission Date: 20120825
  Serious: Yes (Other)
  Sender: FDA-Public Use
  Company Number: US-AMGEN-USASP2012030822

PATIENT
  Age: 53 Year
  Sex: Male
  Weight: 78.005 kg

DRUGS (18)
  1. TYLENOL (CAPLET) [Concomitant]
     Dosage: 1000 MG, UNK
     Route: 048
  2. NPLATE [Suspect]
     Dosage: 560 MUG/KG, UNK
     Dates: start: 20100211
  3. NPLATE [Suspect]
     Dosage: 672 MUG/KG, UNK
     Dates: start: 20100225
  4. RITUXAN [Concomitant]
     Dosage: 800 MG, QWK
     Dates: start: 20111108
  5. NPLATE [Suspect]
     Indication: IDIOPATHIC THROMBOCYTOPENIC PURPURA
     Dosage: 80 MUG/KG, QWK
     Route: 058
     Dates: start: 20091231
  6. NPLATE [Suspect]
     Dosage: 160 MUG/KG, UNK
     Dates: start: 20100107
  7. IMMUNE GLOBULIN NOS [Concomitant]
     Dosage: UNK
     Dates: start: 20091119
  8. NPLATE [Suspect]
     Dosage: 320 MUG/KG, UNK
     Dates: start: 20100121
  9. BENADRYL [Concomitant]
     Dosage: 25 MG, UNK
  10. NPLATE [Suspect]
     Dosage: 400 MUG/KG, UNK
     Dates: start: 20100128
  11. NPLATE [Suspect]
     Dosage: 670 MUG/KG, UNK
     Dates: start: 20101021
  12. NPLATE [Suspect]
     Dosage: 850 MUG/KG, QWK
     Dates: start: 20110606, end: 20110804
  13. NIACIN [Concomitant]
     Indication: BLOOD CHOLESTEROL INCREASED
  14. DANAZOL [Concomitant]
     Dosage: 200 MG, BID
  15. NPLATE [Suspect]
     Dosage: 500 MUG/KG, UNK
     Dates: start: 20100204
  16. ZOCOR [Concomitant]
     Indication: BLOOD CHOLESTEROL INCREASED
     Route: 048
  17. NPLATE [Suspect]
     Dosage: 250 MUG/KG, UNK
     Dates: start: 20100114
  18. NPLATE [Suspect]
     Dosage: 750 MUG/KG, UNK
     Dates: start: 20100909

REACTIONS (2)
  - THERAPEUTIC RESPONSE DECREASED [None]
  - THERAPEUTIC RESPONSE UNEXPECTED [None]
